FAERS Safety Report 17835618 (Version 1)
Quarter: 2020Q2

REPORT INFORMATION
  Report Type: Spontaneous
  Country: ES (occurrence: ES)
  Receive Date: 20200528
  Receipt Date: 20200528
  Transmission Date: 20200714
  Serious: Yes (Death, Life-Threatening, Hospitalization, Other)
  Sender: FDA-Public Use
  Company Number: ES-TEVA-2020-ES-1239419

PATIENT
  Age: 65 Year
  Sex: Female

DRUGS (8)
  1. MYCOPHENOLATE [Suspect]
     Active Substance: MYCOPHENOLIC ACID
     Indication: IMMUNOSUPPRESSANT DRUG THERAPY
     Route: 065
  2. TACROLIMUS. [Suspect]
     Active Substance: TACROLIMUS
     Indication: IMMUNOSUPPRESSANT DRUG THERAPY
     Route: 065
  3. FLUCONAZOLE. [Concomitant]
     Active Substance: FLUCONAZOLE
     Dosage: 400 MILLIGRAM DAILY;
  4. ACYCLOVIR. [Concomitant]
     Active Substance: ACYCLOVIR
     Dosage: 1600 MILLIGRAM DAILY;
  5. CYCLOPHOSPHAMIDE. [Suspect]
     Active Substance: CYCLOPHOSPHAMIDE
     Indication: PROPHYLAXIS AGAINST GRAFT VERSUS HOST DISEASE
     Route: 065
  6. FLUDARABINE [Suspect]
     Active Substance: FLUDARABINE PHOSPHATE
     Route: 065
  7. LEVOFLOXACIN. [Suspect]
     Active Substance: LEVOFLOXACIN
     Dosage: 500 MILLIGRAM DAILY;
     Route: 065
  8. BUSULFAN. [Suspect]
     Active Substance: BUSULFAN
     Route: 065

REACTIONS (24)
  - Respiratory disorder [Unknown]
  - Epistaxis [Unknown]
  - Cerebral infarction [Unknown]
  - Septic embolus [Unknown]
  - Cerebral artery thrombosis [Unknown]
  - Hypoxic-ischaemic encephalopathy [Unknown]
  - Haematoma [Unknown]
  - Arteritis infective [Fatal]
  - Haemodynamic instability [Unknown]
  - Pulmonary infarction [Unknown]
  - Disseminated mucormycosis [Fatal]
  - Acquired macroglossia [Unknown]
  - Ischaemic stroke [Unknown]
  - Thrombocytopenia [Unknown]
  - Gastritis fungal [Unknown]
  - Thrombosis [Unknown]
  - Splenic vein thrombosis [Unknown]
  - Pancreatic necrosis [Unknown]
  - Haemorrhage [Unknown]
  - Pulmonary embolism [Unknown]
  - Mucosal inflammation [Unknown]
  - Fat necrosis [Unknown]
  - Cardio-respiratory arrest [Unknown]
  - Gastrointestinal necrosis [Unknown]
